FAERS Safety Report 5765913-7 (Version None)
Quarter: 2008Q2

REPORT INFORMATION
  Report Type: 
  Country: None (occurrence: None)
  Receive Date: 20080611
  Receipt Date: 20080312
  Transmission Date: 20081010
  Serious: Yes (Hospitalization)
  Sender: FDA-Public Use
  Company Number: US-BRISTOL-MYERS SQUIBB COMPANY-13854625

PATIENT
  Age: 2 Year
  Sex: Male
  Weight: 14 kg

DRUGS (6)
  1. ETOPOSIDE [Suspect]
     Indication: BONE MARROW CONDITIONING REGIMEN
     Route: 042
     Dates: start: 20070722, end: 20070722
  2. MELPHALAN [Concomitant]
     Route: 042
     Dates: start: 20070718, end: 20070721
  3. CARBOPLATIN [Concomitant]
     Route: 042
     Dates: start: 20070722
  4. CEFEPIME [Concomitant]
     Indication: PYREXIA
     Route: 042
     Dates: start: 20070720
  5. SEPTRA [Concomitant]
     Route: 048
     Dates: start: 20070717
  6. HEPARIN [Concomitant]
     Indication: PULMONARY EMBOLISM
     Route: 042
     Dates: start: 20070717

REACTIONS (1)
  - BRONCHOSPASM [None]
